FAERS Safety Report 7659587 (Version 3)
Quarter: 2012Q4

REPORT INFORMATION
  Report Type: 
  Country: US (occurrence: US)
  Receive Date: 20101108
  Receipt Date: 20120926
  Transmission Date: 20130627
  Serious: Yes (Hospitalization, Disabling)
  Sender: FDA-Public Use
  Company Number: US-US-EMD SERONO, INC.-230620J10USA

PATIENT
  Age: 47 None
  Sex: Female

DRUGS (2)
  1. REBIF [Suspect]
     Indication: MULTIPLE SCLEROSIS
     Route: 058
     Dates: start: 20070702
  2. ASACOL [Concomitant]
     Indication: COLITIS ULCERATIVE
     Dates: end: 2009

REACTIONS (9)
  - Deep vein thrombosis [Recovered/Resolved]
  - Urinary tract infection [Recovered/Resolved]
  - Spinal column injury [Unknown]
  - Multiple sclerosis [Not Recovered/Not Resolved]
  - Memory impairment [Unknown]
  - Vomiting [Unknown]
  - Dysstasia [Unknown]
  - Cognitive disorder [Not Recovered/Not Resolved]
  - Oedema peripheral [Unknown]
